FAERS Safety Report 9792978 (Version 2)
Quarter: 2014Q1

REPORT INFORMATION
  Report Type: Spontaneous
  Country: US (occurrence: US)
  Receive Date: 20140102
  Receipt Date: 20140102
  Transmission Date: 20141002
  Serious: Yes (Other)
  Sender: FDA-Public Use
  Company Number: PHEH2013US024532

PATIENT
  Sex: Female

DRUGS (6)
  1. TASIGNA [Suspect]
     Indication: CHRONIC MYELOID LEUKAEMIA
     Dosage: UNK
  2. TASIGNA [Suspect]
     Dosage: 200 MG, BID
     Dates: start: 20131124
  3. AUGMENTIN [Concomitant]
     Indication: INFECTION
     Dosage: 275 MG, Q12H
     Dates: start: 20131114
  4. TENORETIC [Concomitant]
     Indication: BLOOD PRESSURE
     Dosage: 20 MG, QD
  5. SYNTHROID [Concomitant]
     Indication: HYPOTHYROIDISM
     Dosage: 0.125 MG, QD
  6. PRILOSEC [Concomitant]
     Indication: ABDOMINAL DISCOMFORT
     Dosage: 20 MG, QD
     Dates: start: 20131114

REACTIONS (3)
  - Blood bilirubin increased [Recovered/Resolved]
  - Rash [Recovered/Resolved]
  - Headache [Recovered/Resolved]
